FAERS Safety Report 10189935 (Version 1)
Quarter: 2014Q2

REPORT INFORMATION
  Report Type: Spontaneous
  Country: NL (occurrence: NL)
  Receive Date: 20140522
  Receipt Date: 20140522
  Transmission Date: 20141212
  Serious: Yes (Hospitalization)
  Sender: FDA-Public Use
  Company Number: NL-MYLANLABS-2014S1010947

PATIENT
  Age: 71 Year
  Sex: Female
  Weight: 60 kg

DRUGS (1)
  1. TERBINAFINE [Suspect]
     Indication: ONYCHOMYCOSIS
     Dosage: DOSERING NIET INGEVULD
     Route: 048
     Dates: start: 201402, end: 20140314

REACTIONS (3)
  - Blood test abnormal [Recovering/Resolving]
  - Rash [Recovering/Resolving]
  - Hepatic function abnormal [Unknown]
